FAERS Safety Report 9090647 (Version 2)
Quarter: 2013Q1

REPORT INFORMATION
  Report Type: Report from Study
  Country: US (occurrence: US)
  Receive Date: 20130131
  Receipt Date: 20130301
  Transmission Date: 20140127
  Serious: Yes (Other)
  Sender: FDA-Public Use
  Company Number: US-ABBOTT-13P-163-1040997-00

PATIENT
  Sex: Male
  Weight: 110.32 kg

DRUGS (16)
  1. HUMIRA [Suspect]
     Indication: RHEUMATOID ARTHRITIS
  2. METHADONE [Concomitant]
     Indication: PRODUCT USED FOR UNKNOWN INDICATION
  3. NEURONTIN [Concomitant]
     Indication: PRODUCT USED FOR UNKNOWN INDICATION
  4. FUROSEMIDE [Concomitant]
     Indication: PRODUCT USED FOR UNKNOWN INDICATION
  5. NEXIUM [Concomitant]
     Indication: PRODUCT USED FOR UNKNOWN INDICATION
     Dosage: 40MG QHS
  6. METFORMIN [Concomitant]
     Indication: DIABETES MELLITUS
  7. ROPINIROLE [Concomitant]
     Indication: RESTLESS LEGS SYNDROME
     Dosage: 3MG QHS
  8. TAMSULOSIN [Concomitant]
     Indication: PROSTATIC DISORDER
     Dosage: 4 MG QHS
  9. SIMVASTATIN [Concomitant]
     Indication: BLOOD CHOLESTEROL
     Dosage: 20 MG QHS
  10. COLACE [Concomitant]
     Indication: PRODUCT USED FOR UNKNOWN INDICATION
  11. LISINOPRIL [Concomitant]
     Indication: BLOOD PRESSURE
     Dosage: 10 MG QAM
  12. AMLODIPINE [Concomitant]
     Indication: BLOOD PRESSURE
     Dosage: 5MG QAM
  13. ASPIRIN [Concomitant]
     Indication: PRODUCT USED FOR UNKNOWN INDICATION
     Dosage: MWF
  14. CITALOPRAM [Concomitant]
     Indication: AGITATION
     Dosage: 20MG QAM
  15. CITALOPRAM [Concomitant]
     Indication: DEPRESSION
  16. CITALOPRAM [Concomitant]
     Indication: ANGER

REACTIONS (4)
  - Calculus bladder [Recovered/Resolved]
  - Injection site bruising [Not Recovered/Not Resolved]
  - Exostosis [Not Recovered/Not Resolved]
  - Incorrect product storage [Unknown]
